FAERS Safety Report 26091018 (Version 1)
Quarter: 2025Q4

REPORT INFORMATION
  Report Type: Spontaneous
  Country: EU (occurrence: EU)
  Receive Date: 20251126
  Receipt Date: 20251126
  Transmission Date: 20260117
  Serious: Yes (Other)
  Sender: ROCHE
  Company Number: None

PATIENT
  Age: 50 Year
  Sex: Male

DRUGS (10)
  1. RITUXIMAB [Suspect]
     Active Substance: RITUXIMAB
     Indication: Mantle cell lymphoma
     Dosage: R-DHAP REGIMEN, 6 CYCLES
     Route: 065
     Dates: start: 2023, end: 202403
  2. RITUXIMAB [Suspect]
     Active Substance: RITUXIMAB
     Dosage: R-CHOP REGIMEN, 6 CYCLES
     Route: 065
     Dates: start: 202311, end: 202403
  3. DEXAMETHASONE [Suspect]
     Active Substance: DEXAMETHASONE
     Indication: Mantle cell lymphoma
     Dosage: R-DHAP REGIMEN, 6 CYCLES
     Route: 065
     Dates: start: 2023, end: 202403
  4. CYTARABINE [Suspect]
     Active Substance: CYTARABINE
     Indication: Mantle cell lymphoma
     Dosage: R-DHAP REGIMEN, 6 CYCLES
     Route: 065
     Dates: start: 2023, end: 202403
  5. CISPLATIN [Suspect]
     Active Substance: CISPLATIN
     Indication: Mantle cell lymphoma
     Dosage: R-DHAP REGIMEN, 6 CYCLES
     Route: 065
     Dates: start: 2023, end: 202411
  6. VINCRISTINE [Concomitant]
     Active Substance: VINCRISTINE
     Indication: Mantle cell lymphoma
     Dosage: R-CHOP REGIMEN, 6 CYCLES
     Route: 065
     Dates: start: 202311, end: 202403
  7. PREDNISONE [Concomitant]
     Active Substance: PREDNISONE
     Indication: Mantle cell lymphoma
     Dosage: R-CHOP REGIMEN, 6 CYCLES
     Route: 065
     Dates: start: 202311, end: 202403
  8. DOXORUBICIN [Concomitant]
     Active Substance: DOXORUBICIN
     Indication: Mantle cell lymphoma
     Dosage: R-CHOP REGIMEN, 6 CYCLES
     Route: 065
     Dates: start: 202311, end: 202403
  9. CYCLOPHOSPHAMIDE [Concomitant]
     Active Substance: CYCLOPHOSPHAMIDE
     Indication: Mantle cell lymphoma
     Dosage: R-CHOP REGIMEN, 6 CYCLES
     Route: 065
     Dates: start: 202311, end: 202403
  10. IBRUTINIB [Concomitant]
     Active Substance: IBRUTINIB
     Indication: Mantle cell lymphoma
     Dosage: DURING THE ODD-NUMBERED (R-CHOP) CYCLES, THE PATIENT RECEIVED IBRUTINIB FROM DAY 1 TO 19
     Route: 065
     Dates: start: 202311

REACTIONS (1)
  - Haematotoxicity [Unknown]
